FAERS Safety Report 5962565-8 (Version None)
Quarter: 2008Q4

REPORT INFORMATION
  Report Type: 
  Country: None (occurrence: None)
  Receive Date: 20081121
  Receipt Date: 20081117
  Transmission Date: 20090506
  Serious: Yes (Death, Other)
  Sender: FDA-Public Use
  Company Number: PHHY2008US25377

PATIENT
  Sex: Female

DRUGS (3)
  1. CLOZARIL [Suspect]
     Indication: HALLUCINATION
     Dosage: 100 MG, HS
     Route: 048
     Dates: end: 20080701
  2. CLOZARIL [Suspect]
     Indication: PARKINSON'S DISEASE
  3. SINEMET [Concomitant]
     Indication: PARKINSON'S DISEASE
     Dosage: 2 TABS DAILY

REACTIONS (2)
  - COMA [None]
  - DEATH [None]
